FAERS Safety Report 8739573 (Version 3)
Quarter: 2012Q4

REPORT INFORMATION
  Report Type: Report from Study
  Country: BR (occurrence: BR)
  Receive Date: 20120823
  Receipt Date: 20121207
  Transmission Date: 20130627
  Serious: Yes (Hospitalization, Other)
  Sender: FDA-Public Use
  Company Number: BR-ROCHE-1016986

PATIENT
  Age: 36 Year
  Sex: Female
  Weight: 66.8 kg

DRUGS (16)
  1. ADO-TRASTUZUMAB EMTANSINE [Suspect]
     Indication: BREAST CANCER METASTATIC
     Dosage: Last dose prior to SAE was on 01/Mar/2012
     Route: 042
     Dates: start: 20111122
  2. CODEINE [Concomitant]
     Indication: CHEST PAIN
     Route: 065
     Dates: start: 201107, end: 20111031
  3. LORATADINE [Concomitant]
     Indication: PRURITUS
     Route: 065
     Dates: start: 201110, end: 20111127
  4. LORATADINE [Concomitant]
     Route: 065
     Dates: start: 20111206, end: 20111207
  5. LORATADINE [Concomitant]
     Route: 065
     Dates: start: 20111207, end: 20111208
  6. TRANEXAMIC ACID [Concomitant]
     Route: 065
     Dates: start: 20111127, end: 20111128
  7. DEXAMETHASONE [Concomitant]
     Route: 065
     Dates: start: 20111127, end: 20111128
  8. DIPYRONE [Concomitant]
     Indication: PAIN PROPHYLAXIS
     Route: 065
     Dates: start: 20111127, end: 20111128
  9. METOCLOPRAMIDE [Concomitant]
     Indication: PROPHYLAXIS OF NAUSEA AND VOMITING
     Route: 065
     Dates: start: 20111127, end: 20111128
  10. METOCLOPRAMIDE [Concomitant]
     Indication: VOMITING
     Route: 065
     Dates: start: 20111229, end: 20111231
  11. OMEPRAZOLE [Concomitant]
     Indication: PROPHYLAXIS AGAINST GASTROINTESTINAL ULCER
     Route: 065
     Dates: start: 20111127, end: 20111130
  12. LACTULOSE [Concomitant]
     Indication: CONSTIPATION PROPHYLAXIS
     Route: 065
     Dates: start: 20111128, end: 20111130
  13. HYDROCORTISONE [Concomitant]
     Indication: TREMOR
     Route: 065
     Dates: start: 20111122, end: 20111122
  14. BENADRYL [Concomitant]
     Indication: TREMOR
     Route: 065
     Dates: start: 20111122, end: 20111122
  15. LISADOR [Concomitant]
     Indication: BACK PAIN
     Route: 065
     Dates: start: 20111229, end: 20111231
  16. PERTUZUMAB [Suspect]
     Indication: BREAST CANCER METASTATIC
     Dosage: Date of last dose prior to SAE: 01/Mar/2012
     Route: 042
     Dates: start: 20111122

REACTIONS (4)
  - Haemoptysis [Recovered/Resolved]
  - Thrombocytopenia [Recovered/Resolved]
  - Hepatic enzyme increased [Recovered/Resolved]
  - Vomiting [Recovered/Resolved]
